FAERS Safety Report 5482027-4 (Version None)
Quarter: 2007Q4

REPORT INFORMATION
  Report Type: 
  Country: None (occurrence: None)
  Receive Date: 20071005
  Receipt Date: 20070926
  Transmission Date: 20080405
  Serious: Yes (Other)
  Sender: FDA-Public Use
  Company Number: 2007BI018080

PATIENT
  Age: 59 Year
  Sex: Male
  Weight: 68.0396 kg

DRUGS (1)
  1. NATALIZUMAB [Suspect]
     Indication: MULTIPLE SCLEROSIS
     Dosage: 300 MG; QM; IV
     Route: 042
     Dates: start: 20061201, end: 20070823

REACTIONS (2)
  - COLON CANCER METASTATIC [None]
  - METASTASES TO LYMPH NODES [None]
